FAERS Safety Report 24932269 (Version 1)
Quarter: 2025Q1

REPORT INFORMATION
  Report Type: Report from Study
  Country: US (occurrence: US)
  Receive Date: 20250205
  Receipt Date: 20250205
  Transmission Date: 20250408
  Serious: No
  Sender: EXELIXIS
  Company Number: US-EXELIXIS-CABO-24080127

PATIENT

DRUGS (6)
  1. CABOMETYX [Suspect]
     Active Substance: CABOZANTINIB S-MALATE
     Indication: Hepatic angiosarcoma
     Dosage: 40 MG, QD
     Route: 048
     Dates: start: 20240714
  2. ELIQUIS [Concomitant]
     Active Substance: APIXABAN
  3. HYDROCORTISONE [Concomitant]
     Active Substance: HYDROCORTISONE
  4. NYSTATIN [Concomitant]
     Active Substance: NYSTATIN
  5. POLYMYXIN B SULFATE AND TRIMETHOPRIM [Concomitant]
     Active Substance: POLYMYXIN B SULFATE\TRIMETHOPRIM SULFATE
  6. PROCHLORPERAZINE [Concomitant]
     Active Substance: PROCHLORPERAZINE

REACTIONS (5)
  - Constipation [Unknown]
  - Diarrhoea [Unknown]
  - Fatigue [Unknown]
  - Thirst [Unknown]
  - Off label use [Unknown]

NARRATIVE: CASE EVENT DATE: 20240718
